FAERS Safety Report 4555366-9 (Version None)
Quarter: 2005Q1

REPORT INFORMATION
  Report Type: 
  Country: None (occurrence: None)
  Receive Date: 20050118
  Receipt Date: 20050118
  Transmission Date: 20050727
  Serious: Yes (Death)
  Sender: FDA-Public Use
  Company Number: None

PATIENT
  Age: 71 Year
  Sex: Female
  Weight: 65.318 kg

DRUGS (1)
  1. CELEBREX [Suspect]
     Indication: OSTEOARTHRITIS
     Dosage: ORAL QD  BID
     Route: 048
     Dates: start: 19990101, end: 20041006

REACTIONS (2)
  - HAEMORRHAGE INTRACRANIAL [None]
  - TRANSIENT ISCHAEMIC ATTACK [None]
